FAERS Safety Report 4871264-5 (Version None)
Quarter: 2005Q4

REPORT INFORMATION
  Report Type: 
  Country: None (occurrence: None)
  Receive Date: 20051229
  Receipt Date: 20051220
  Transmission Date: 20060501
  Serious: Yes (Other)
  Sender: FDA-Public Use
  Company Number: 2005171136

PATIENT
  Age: 74 Year
  Sex: Male
  Weight: 108.8633 kg

DRUGS (4)
  1. ZMAX [Suspect]
     Indication: PHARYNGOLARYNGEAL PAIN
     Dates: start: 20051208
  2. PROPRANOLOL [Concomitant]
  3. HYDROCHLOROTHIAZIDE [Concomitant]
  4. ASPIRIN [Concomitant]

REACTIONS (1)
  - DYSPNOEA [None]
